FAERS Safety Report 25070201 (Version 1)
Quarter: 2025Q1

REPORT INFORMATION
  Report Type: Spontaneous
  Country: US (occurrence: US)
  Receive Date: 20250312
  Receipt Date: 20250312
  Transmission Date: 20250408
  Serious: No
  Sender: BIOGEN
  Company Number: US-BIOGEN-2025BI01298979

PATIENT
  Sex: Female

DRUGS (1)
  1. PLEGRIDY [Suspect]
     Active Substance: PEGINTERFERON BETA-1A
     Indication: Multiple sclerosis
     Route: 050
     Dates: start: 20210415

REACTIONS (5)
  - Product storage error [Unknown]
  - Decreased gait velocity [Not Recovered/Not Resolved]
  - Fatigue [Unknown]
  - Memory impairment [Unknown]
  - Gait disturbance [Unknown]
